FAERS Safety Report 16735165 (Version 1)
Quarter: 2019Q3

REPORT INFORMATION
  Report Type: Spontaneous
  Country: FR (occurrence: FR)
  Receive Date: 20190823
  Receipt Date: 20190823
  Transmission Date: 20191005
  Serious: Yes (Hospitalization)
  Sender: FDA-Public Use
  Company Number: FR-SA-2019SA225526

PATIENT
  Age: 81 Year
  Sex: Female
  Weight: 95 kg

DRUGS (23)
  1. PIPERACILLIN/TAZOBACTAM [Suspect]
     Active Substance: PIPERACILLIN SODIUM\TAZOBACTAM SODIUM
     Indication: INFECTION
     Dosage: 2 DF, QD
     Route: 042
     Dates: start: 20190629, end: 20190702
  2. TRAMADOL HYDROCHLORIDE. [Suspect]
     Active Substance: TRAMADOL HYDROCHLORIDE
     Indication: PAIN
     Dosage: 200 MG, QD
     Route: 048
     Dates: start: 20190621, end: 20190702
  3. MORPHINE SALT NOT SPECIFIED [Suspect]
     Active Substance: MORPHINE
     Indication: PAIN
     Dosage: IF NECESSARY (MAX 10 MG / DAY)
     Route: 042
     Dates: start: 20190621
  4. VANCOMYCIN [Suspect]
     Active Substance: VANCOMYCIN
     Indication: INFECTION
     Dosage: 2000 MG, QD
     Route: 042
     Dates: start: 20190621, end: 20190628
  5. TOPALGIC [TRAMADOL HYDROCHLORIDE] [Suspect]
     Active Substance: TRAMADOL HYDROCHLORIDE
     Indication: PAIN
     Dosage: 100 MG, TOTAL
     Route: 042
     Dates: start: 20190621, end: 20190621
  6. PARACETAMOL [Suspect]
     Active Substance: ACETAMINOPHEN
     Indication: PAIN
     Dosage: 1000 MG, TOTAL
     Route: 042
     Dates: start: 20190621, end: 20190621
  7. CEFAZOLIN SODIUM. [Suspect]
     Active Substance: CEFAZOLIN SODIUM
     Indication: ANTI-INFECTIVE THERAPY
     Dosage: 4 G, TOTAL
     Route: 042
     Dates: start: 20190621, end: 20190621
  8. HEMIGOXINE NATIVELLE [Concomitant]
     Active Substance: DIGOXIN
     Indication: CARDIAC FAILURE
     Dosage: 0.13 MG, QD
     Route: 048
  9. ATRACURIUM BESILATE [Suspect]
     Active Substance: ATRACURIUM BESYLATE
     Indication: ANAESTHESIA
     Dosage: 25 MG, TOTAL
     Route: 042
     Dates: start: 20190621, end: 20190621
  10. ALPRAZOLAM. [Suspect]
     Active Substance: ALPRAZOLAM
     Indication: ANXIETY
     Dosage: 0.25 MG, QD
     Route: 048
     Dates: start: 20190620, end: 20190702
  11. DOLIPRANE [Suspect]
     Active Substance: ACETAMINOPHEN
     Indication: PAIN
     Dosage: 4000 MG, QD
     Route: 048
     Dates: start: 20190621, end: 20190702
  12. PANTOPRAZOLE SODIUM. [Concomitant]
     Active Substance: PANTOPRAZOLE SODIUM
     Indication: PEPTIC ULCER
     Dosage: 40 MG, QD
     Route: 048
  13. REMIFENTANIL MYLAN [Suspect]
     Active Substance: REMIFENTANIL
     Indication: ANAESTHESIA
     Dosage: 169 UG, TOTAL
     Route: 042
     Dates: start: 20190621, end: 20190621
  14. MORPHINE SULFATE. [Suspect]
     Active Substance: MORPHINE SULFATE
     Indication: PAIN
     Dosage: 5 MG, PRN
     Route: 048
     Dates: start: 20190621, end: 20190702
  15. GENTAMICIN SULFATE. [Suspect]
     Active Substance: GENTAMICIN SULFATE
     Indication: INFECTION
     Dosage: 240 MG, QD
     Route: 030
     Dates: start: 20190621, end: 20190628
  16. NEFOPAM MYLAN [Suspect]
     Active Substance: NEFOPAM
     Indication: PAIN
     Dosage: 20 MG, TOTAL
     Route: 042
     Dates: start: 20190621, end: 20190621
  17. LASILIX FAIBLE [Concomitant]
     Active Substance: FUROSEMIDE
     Indication: CARDIAC FAILURE
     Dosage: 20 MG, QD
     Route: 048
  18. DEXAMETHASONE. [Suspect]
     Active Substance: DEXAMETHASONE
     Indication: HYPERSENSITIVITY
     Dosage: 4 MG, TOTAL
     Route: 042
     Dates: start: 20190621, end: 20190621
  19. SULFADIAZINE. [Suspect]
     Active Substance: SULFADIAZINE
     Indication: INFECTION
     Dosage: 2 DF, QD
     Route: 003
     Dates: start: 20190627, end: 20190702
  20. LOVENOX [Suspect]
     Active Substance: ENOXAPARIN SODIUM
     Indication: THROMBOSIS
     Dosage: 2000 IU, QD
     Route: 058
     Dates: start: 20190620, end: 20190702
  21. ONDANSETRON [Suspect]
     Active Substance: ONDANSETRON
     Indication: NAUSEA
     Dosage: 4 MG, PRN
     Route: 042
     Dates: start: 20190621, end: 20190622
  22. PROPOFOL. [Suspect]
     Active Substance: PROPOFOL
     Indication: ANAESTHESIA
     Dosage: 150 MG, TOTAL
     Route: 042
     Dates: start: 20190621, end: 20190621
  23. ALDACTONE [Concomitant]
     Active Substance: SPIRONOLACTONE
     Indication: CARDIAC FAILURE
     Dosage: 25 MG, QD
     Route: 048

REACTIONS (2)
  - Stevens-Johnson syndrome [Recovering/Resolving]
  - Overdose [Unknown]

NARRATIVE: CASE EVENT DATE: 20190630
